FAERS Safety Report 15842302 (Version 3)
Quarter: 2019Q1

REPORT INFORMATION
  Report Type: Spontaneous
  Country: JP (occurrence: JP)
  Receive Date: 20190118
  Receipt Date: 20190225
  Transmission Date: 20190417
  Serious: Yes (Hospitalization)
  Sender: FDA-Public Use
  Company Number: JP-EISAI MEDICAL RESEARCH-EC-2019-050616

PATIENT
  Age: 79 Year
  Sex: Male
  Weight: 65 kg

DRUGS (2)
  1. LENVIMA [Suspect]
     Active Substance: LENVATINIB
     Route: 048
     Dates: start: 20190113, end: 20190206
  2. LENVIMA [Suspect]
     Active Substance: LENVATINIB
     Indication: HEPATOCELLULAR CARCINOMA
     Route: 048
     Dates: start: 20181207, end: 20190111

REACTIONS (3)
  - Leukoencephalopathy [Unknown]
  - Fatigue [Recovering/Resolving]
  - Blood albumin decreased [Not Recovered/Not Resolved]

NARRATIVE: CASE EVENT DATE: 20190111
